FAERS Safety Report 7970217-8 (Version None)
Quarter: 2011Q4

REPORT INFORMATION
  Report Type: 
  Country: None (occurrence: None)
  Receive Date: 20111212
  Receipt Date: 20111204
  Transmission Date: 20120403
  Serious: Yes (Hospitalization, Other)
  Sender: FDA-Public Use
  Company Number: KR-JNJFOC-20111007245

PATIENT
  Age: 57 Year
  Sex: Female

DRUGS (11)
  1. INVEGA [Suspect]
     Route: 048
  2. LAMICTAL [Suspect]
     Route: 065
     Dates: start: 20090801
  3. RISPERDAL [Suspect]
     Indication: PSYCHOTIC DISORDER
     Route: 048
     Dates: start: 20090617
  4. LAMICTAL [Suspect]
     Route: 065
     Dates: start: 20090801
  5. LAMICTAL [Suspect]
     Indication: BIPOLAR DISORDER
     Route: 065
  6. PROPRANOLOL HCL [Concomitant]
     Route: 065
  7. BENZTROPINE MESYLATE [Concomitant]
     Route: 065
  8. WELLBUTRIN [Concomitant]
     Route: 065
  9. INVEGA [Suspect]
     Indication: PSYCHOTIC DISORDER
     Route: 048
  10. LAMICTAL [Suspect]
     Indication: SCHIZOAFFECTIVE DISORDER
     Route: 065
  11. XANAX [Concomitant]
     Route: 065

REACTIONS (3)
  - DEPRESSED MOOD [None]
  - EXTRAPYRAMIDAL DISORDER [None]
  - AGITATION [None]
